FAERS Safety Report 9337449 (Version 2)
Quarter: 2013Q2

REPORT INFORMATION
  Report Type: Other
  Country: US (occurrence: US)
  Receive Date: 20130607
  Receipt Date: 20130613
  Transmission Date: 20140414
  Serious: Yes (Other)
  Sender: FDA-Public Use
  Company Number: US-BRISTOL-MYERS SQUIBB COMPANY-18981746

PATIENT
  Age: 56 Year
  Sex: Male

DRUGS (1)
  1. METFORMIN HCL [Suspect]
     Indication: TYPE 2 DIABETES MELLITUS

REACTIONS (4)
  - Pyelonephritis [Not Recovered/Not Resolved]
  - Lactic acidosis [Recovering/Resolving]
  - Pulseless electrical activity [Recovered/Resolved]
  - Renal failure acute [Not Recovered/Not Resolved]
